FAERS Safety Report 23068278 (Version 1)
Quarter: 2023Q4

REPORT INFORMATION
  Report Type: Spontaneous
  Country: US (occurrence: US)
  Receive Date: 20231016
  Receipt Date: 20231016
  Transmission Date: 20240110
  Serious: Yes (Life-Threatening, Hospitalization)
  Sender: FDA-Public Use
  Company Number: US-LUPIN PHARMACEUTICALS INC.-2023-08792

PATIENT
  Age: 77 Year
  Sex: Male

DRUGS (12)
  1. VANCOMYCIN [Suspect]
     Active Substance: VANCOMYCIN
     Indication: Evidence based treatment
     Dosage: UNK, AS EMPIRICAL ANTIBACTERIAL TREATMENT
     Route: 065
  2. VANCOMYCIN [Suspect]
     Active Substance: VANCOMYCIN
     Indication: Listeriosis
     Dosage: UNK
     Route: 065
  3. VANCOMYCIN [Suspect]
     Active Substance: VANCOMYCIN
     Indication: Central nervous system infection
  4. CEFTRIAXONE [Suspect]
     Active Substance: CEFTRIAXONE\CEFTRIAXONE SODIUM
     Indication: Listeriosis
     Dosage: UNK
     Route: 065
  5. CEFTRIAXONE [Suspect]
     Active Substance: CEFTRIAXONE\CEFTRIAXONE SODIUM
     Indication: Central nervous system infection
  6. AMPICILLIN [Suspect]
     Active Substance: AMPICILLIN
     Indication: Listeriosis
     Dosage: UNK
     Route: 065
  7. AMPICILLIN [Suspect]
     Active Substance: AMPICILLIN
     Indication: Central nervous system infection
     Dosage: UNK
     Route: 042
  8. ACYCLOVIR [Suspect]
     Active Substance: ACYCLOVIR
     Indication: Listeriosis
     Dosage: UNK
     Route: 065
  9. ACYCLOVIR [Suspect]
     Active Substance: ACYCLOVIR
     Indication: Central nervous system infection
  10. GENTAMICIN [Suspect]
     Active Substance: GENTAMICIN
     Indication: Listeriosis
     Dosage: UNK
     Route: 042
  11. GENTAMICIN [Suspect]
     Active Substance: GENTAMICIN
     Indication: Central nervous system infection
  12. ZOSYN [Concomitant]
     Active Substance: PIPERACILLIN SODIUM\TAZOBACTAM SODIUM
     Indication: Evidence based treatment
     Dosage: UNK, AS EMPIRICAL ANTIBACTERIAL TREATMENT
     Route: 065

REACTIONS (3)
  - Drug ineffective for unapproved indication [Unknown]
  - Condition aggravated [Unknown]
  - Off label use [Unknown]
